FAERS Safety Report 16398339 (Version 4)
Quarter: 2019Q3

REPORT INFORMATION
  Report Type: Report from Study
  Country: IT (occurrence: IT)
  Receive Date: 20190606
  Receipt Date: 20190701
  Transmission Date: 20191004
  Serious: Yes (Other)
  Sender: FDA-Public Use
  Company Number: IT-PFIZER INC-2019239546

PATIENT
  Age: 83 Year
  Sex: Female
  Weight: 60 kg

DRUGS (9)
  1. LANSOPRAZOLE. [Interacting]
     Active Substance: LANSOPRAZOLE
     Dosage: 30 MILLIGRAM, QD
     Route: 048
     Dates: start: 20190310
  2. ATORVASTATIN [Concomitant]
     Active Substance: ATORVASTATIN
     Dosage: UNK
  3. SERTRALINE HCL [Interacting]
     Active Substance: SERTRALINE HYDROCHLORIDE
     Indication: DEPRESSION
     Dosage: 50 MILLIGRAM, QD
     Route: 048
     Dates: start: 20190310
  4. CANRENONE [Concomitant]
     Active Substance: CANRENONE
     Dosage: UNK
  5. FUROSEMIDE. [Interacting]
     Active Substance: FUROSEMIDE
     Dosage: 40 MILLIGRAM, QD
     Route: 048
     Dates: start: 20190312
  6. POTASSIUM CHLORIDE. [Concomitant]
     Active Substance: POTASSIUM CHLORIDE
     Dosage: UNK
  7. CEFTRIAXONE SODIUM. [Suspect]
     Active Substance: CEFTRIAXONE SODIUM
     Dosage: 2 GRAM, QD
     Route: 065
     Dates: start: 20190312
  8. AMIODARONE HCL [Interacting]
     Active Substance: AMIODARONE HYDROCHLORIDE
     Dosage: 200 MILLIGRAM, QD
     Route: 048
     Dates: start: 20190310
  9. ENALAPRIL [Concomitant]
     Active Substance: ENALAPRIL
     Dosage: UNK

REACTIONS (2)
  - Drug interaction [Unknown]
  - Electrocardiogram QT prolonged [Unknown]

NARRATIVE: CASE EVENT DATE: 20190314
